FAERS Safety Report 5085441-4 (Version None)
Quarter: 2006Q3

REPORT INFORMATION
  Report Type: 
  Country: None (occurrence: None)
  Receive Date: 20060816
  Receipt Date: 20060803
  Transmission Date: 20061208
  Serious: Yes (Hospitalization)
  Sender: FDA-Public Use
  Company Number: HQWYE797003AUG06

PATIENT
  Age: 84 Year
  Sex: Female

DRUGS (6)
  1. PANTOPRAZOLE SODIUM [Suspect]
     Indication: DYSPEPSIA
     Dosage: 40 MG 1X PER 1 DAY, ORAL
     Route: 048
     Dates: start: 20051201, end: 20060615
  2. VENORUTON (TROXERUTIN, ) [Suspect]
     Indication: VENOUS INSUFFICIENCY
     Dosage: 500 MG 2X PER 1 DAY. ORAL
     Route: 048
     Dates: start: 20060524, end: 20060607
  3. ATENOLOL [Concomitant]
  4. THYRAX (LEVOTHYROXINE) [Concomitant]
  5. ACETYLSALICYLATE CALCIUM (ACETYLSALICYLATE CALCIUM) [Concomitant]
  6. CARBASALATE CALCIUM (CARBASALATE CALCIUM) [Concomitant]

REACTIONS (2)
  - DRUG TOXICITY [None]
  - HYPERBILIRUBINAEMIA [None]
